FAERS Safety Report 4651185-3 (Version None)
Quarter: 2005Q2

REPORT INFORMATION
  Report Type: 
  Country: None (occurrence: None)
  Receive Date: 20050503
  Receipt Date: 20050425
  Transmission Date: 20051028
  Serious: Yes (Other)
  Sender: FDA-Public Use
  Company Number: US-NOVOPROD-243727

PATIENT
  Age: 83 Year
  Sex: Male
  Weight: 111 kg

DRUGS (16)
  1. NOVOSEVEN [Suspect]
     Indication: FACTOR VII DEFICIENCY
     Dosage: 36000 UG, SINGLE
     Route: 042
     Dates: start: 20050424, end: 20050424
  2. NOVOSEVEN [Suspect]
     Dosage: 36000 UG, SINGLE
     Route: 042
     Dates: start: 20050425, end: 20050425
  3. LASIX [Concomitant]
     Indication: CARDIAC DISORDER
  4. HEPARIN [Concomitant]
     Indication: PROPHYLAXIS
  5. POTASSIUM CHLORIDE [Concomitant]
     Indication: HYPOKALAEMIA
  6. PROTONIX [Concomitant]
     Indication: GASTROOESOPHAGEAL REFLUX DISEASE
  7. VANCOMYCIN [Concomitant]
     Indication: CELLULITIS
  8. ZOSYN [Concomitant]
     Indication: CELLULITIS
  9. LENOXIN [Concomitant]
     Indication: ATRIAL FIBRILLATION
  10. NORVASC [Concomitant]
     Indication: HYPERTENSION
  11. LORTAB [Concomitant]
     Indication: PAIN
  12. TYLENOL (CAPLET) [Concomitant]
     Indication: PAIN
  13. MILK OF MAGNESIA [Concomitant]
     Indication: CONSTIPATION
  14. TIGAN [Concomitant]
     Indication: NAUSEA
  15. SERAX [Concomitant]
     Indication: INSOMNIA
  16. VITAMIN K [Concomitant]
     Indication: FACTOR VII DEFICIENCY
     Dates: start: 20050421, end: 20050423

REACTIONS (2)
  - ACCIDENTAL OVERDOSE [None]
  - CEREBROVASCULAR ACCIDENT [None]
